FAERS Safety Report 8312045-X (Version None)
Quarter: 2012Q2

REPORT INFORMATION
  Report Type: 
  Country: None (occurrence: None)
  Receive Date: 20120425
  Receipt Date: 20120412
  Transmission Date: 20120825
  Serious: Yes (Other)
  Sender: FDA-Public Use
  Company Number: US-ELI_LILLY_AND_COMPANY-US201203004714

PATIENT
  Age: 69 Year
  Sex: Male
  Weight: 86.168 kg

DRUGS (8)
  1. DIURETIC                           /00022001/ [Concomitant]
  2. AMLODIPINE [Concomitant]
  3. BUMETANIDE [Concomitant]
  4. ALLOPURINOL [Concomitant]
  5. COREG [Concomitant]
  6. METFORMIN HCL [Concomitant]
  7. CYMBALTA [Suspect]
     Indication: DEPRESSION
     Dosage: 30 MG, QD
     Route: 048
     Dates: start: 20120213, end: 20120224
  8. GLIMEPIRIDE [Concomitant]

REACTIONS (9)
  - HYPOTENSION [None]
  - PARAESTHESIA [None]
  - FEELING ABNORMAL [None]
  - ARTHROPATHY [None]
  - SUICIDAL IDEATION [None]
  - BURNING SENSATION [None]
  - GAIT DISTURBANCE [None]
  - HALLUCINATION [None]
  - DRUG INEFFECTIVE [None]
